FAERS Safety Report 10561900 (Version 2)
Quarter: 2014Q4

REPORT INFORMATION
  Report Type: Spontaneous
  Country: GB (occurrence: GB)
  Receive Date: 20141104
  Receipt Date: 20141107
  Transmission Date: 20150529
  Serious: Yes (Disabling)
  Sender: FDA-Public Use
  Company Number: GB-MICRO LABS LIMITED-BB2014-00902

PATIENT
  Age: 53 Year
  Sex: Female

DRUGS (1)
  1. SIMVASTATIN. [Suspect]
     Active Substance: SIMVASTATIN
     Indication: BLOOD CHOLESTEROL INCREASED
     Route: 048

REACTIONS (14)
  - Tremor [Unknown]
  - Self esteem decreased [Unknown]
  - Dizziness [Unknown]
  - Social avoidant behaviour [Unknown]
  - Balance disorder [Unknown]
  - Headache [Unknown]
  - Fatigue [Unknown]
  - Insomnia [Unknown]
  - Feeling abnormal [Unknown]
  - Abnormal dreams [Unknown]
  - Drug intolerance [Unknown]
  - Quality of life decreased [Unknown]
  - Activities of daily living impaired [Unknown]
  - Psychiatric symptom [Unknown]
